FAERS Safety Report 13850419 (Version 1)
Quarter: 2017Q3

REPORT INFORMATION
  Report Type: Spontaneous
  Country: HR (occurrence: HR)
  Receive Date: 20170809
  Receipt Date: 20170809
  Transmission Date: 20171127
  Serious: Yes (Other)
  Sender: FDA-Public Use
  Company Number: HR-TEVA-792418ACC

PATIENT
  Age: 40 Year
  Sex: Female

DRUGS (3)
  1. VELAFAX [Suspect]
     Active Substance: VENLAFAXINE HYDROCHLORIDE
     Dosage: 1500 MILLIGRAM DAILY;
     Route: 048
     Dates: start: 20170601, end: 20170601
  2. MIRTAZAPINUM [Suspect]
     Active Substance: MIRTAZAPINE
     Dosage: 300 MILLIGRAM DAILY;
     Route: 048
     Dates: start: 20170601, end: 20170601
  3. HELEX [Suspect]
     Active Substance: ALPRAZOLAM
     Dosage: 5 MILLIGRAM DAILY;
     Route: 048
     Dates: start: 20170601, end: 20170601

REACTIONS (3)
  - Intentional overdose [Unknown]
  - Suicide attempt [Unknown]
  - Somnolence [Unknown]

NARRATIVE: CASE EVENT DATE: 20170601
